FAERS Safety Report 7007977-9 (Version None)
Quarter: 2010Q3

REPORT INFORMATION
  Report Type: 
  Country: None (occurrence: None)
  Receive Date: 20100922
  Receipt Date: 20100909
  Transmission Date: 20110219
  Serious: Yes (Hospitalization)
  Sender: FDA-Public Use
  Company Number: PHHY2010US60178

PATIENT
  Sex: Male

DRUGS (1)
  1. MYFORTIC [Suspect]
     Indication: COMPLICATIONS OF TRANSPLANTED KIDNEY
     Dosage: 720 MG, BID
     Route: 048
     Dates: start: 20100504

REACTIONS (1)
  - COMPLICATIONS OF TRANSPLANTED KIDNEY [None]
